FAERS Safety Report 10109935 (Version 1)
Quarter: 2014Q2

REPORT INFORMATION
  Report Type: Spontaneous
  Country: US (occurrence: None)
  Receive Date: 20140423
  Receipt Date: 20140423
  Transmission Date: 20141212
  Serious: Yes (Other)
  Sender: FDA-Public Use
  Company Number: IPC201404-000172

PATIENT
  Age: 61 Year
  Sex: Female

DRUGS (1)
  1. WARFARIN [Suspect]
     Indication: PULMONARY HYPERTENSION

REACTIONS (3)
  - Calciphylaxis [None]
  - Skin necrosis [None]
  - Vascular calcification [None]
